FAERS Safety Report 6323845-X (Version None)
Quarter: 2009Q3

REPORT INFORMATION
  Report Type: 
  Country: None (occurrence: None)
  Receive Date: 20090824
  Receipt Date: 20090529
  Transmission Date: 20100115
  Serious: No
  Sender: FDA-Public Use
  Company Number: US-ABBOTT-09P-163-0577379-00

PATIENT
  Sex: Male
  Weight: 88.53 kg

DRUGS (6)
  1. NIASPAN [Suspect]
     Indication: HIGH DENSITY LIPOPROTEIN DECREASED
     Dates: start: 20090427, end: 20090525
  2. SIMVASTATIN [Concomitant]
     Indication: HIGH DENSITY LIPOPROTEIN DECREASED
  3. MESTINON [Concomitant]
     Indication: OCULAR MYASTHENIA
  4. ALLOPURINOL [Concomitant]
     Indication: GOUT
  5. ATACAND [Concomitant]
     Indication: HYPERTENSION
  6. UNKNOWN EYE DROPS [Concomitant]
     Indication: GLAUCOMA
     Route: 047

REACTIONS (2)
  - DRUG DOSE OMISSION [None]
  - FLUSHING [None]
